FAERS Safety Report 4889421-0 (Version None)
Quarter: 2006Q1

REPORT INFORMATION
  Report Type: 
  Country: None (occurrence: None)
  Receive Date: 20060124
  Receipt Date: 20051026
  Transmission Date: 20060701
  Serious: Yes (Hospitalization)
  Sender: FDA-Public Use
  Company Number: PHEH2005US11928

PATIENT
  Age: 79 Year
  Sex: Male

DRUGS (4)
  1. CYCLOSPORINE [Suspect]
     Indication: RENAL TRANSPLANT
     Dosage: 400 MG, QD
     Route: 048
     Dates: start: 20050814
  2. MYCOPHENOLATE MOFETIL [Suspect]
     Indication: RENAL TRANSPLANT
  3. PREDNISONE [Suspect]
     Indication: RENAL TRANSPLANT
  4. BASILIXIMAB [Suspect]
     Indication: RENAL TRANSPLANT
     Dates: start: 20050812, end: 20050816

REACTIONS (4)
  - BLOOD CREATININE INCREASED [None]
  - HAEMORRHAGIC CYST [None]
  - RENAL CYST [None]
  - RENAL VESSEL DISORDER [None]
